FAERS Safety Report 9340475 (Version 2)
Quarter: 2014Q1

REPORT INFORMATION
  Report Type: Spontaneous
  Country: US (occurrence: US)
  Receive Date: 20130610
  Receipt Date: 20140327
  Transmission Date: 20141002
  Serious: Yes (Hospitalization)
  Sender: FDA-Public Use
  Company Number: US-AMGEN-USASP2013039774

PATIENT
  Age: 64 Year
  Sex: Female

DRUGS (1)
  1. ENBREL [Suspect]
     Indication: RHEUMATOID ARTHRITIS
     Dosage: 50 MG WEEKLY
     Route: 065
     Dates: start: 20130201, end: 201311

REACTIONS (6)
  - Deep vein thrombosis [Recovered/Resolved]
  - Cellulitis [Unknown]
  - Arthralgia [Unknown]
  - Renal disorder [Recovered/Resolved]
  - Arthritis [Unknown]
  - Haematuria [Recovered/Resolved]
